FAERS Safety Report 15169237 (Version 1)
Quarter: 2018Q3

REPORT INFORMATION
  Report Type: Spontaneous
  Country: FR (occurrence: FR)
  Receive Date: 20180720
  Receipt Date: 20180720
  Transmission Date: 20181010
  Serious: Yes (Other)
  Sender: FDA-Public Use
  Company Number: FR-009507513-1710FRA006034

PATIENT
  Age: 38 Year
  Sex: Female
  Weight: 59 kg

DRUGS (1)
  1. JANUMET [Suspect]
     Active Substance: METFORMIN HYDROCHLORIDE\SITAGLIPTIN PHOSPHATE
     Indication: TYPE 2 DIABETES MELLITUS
     Dosage: 1 TABLET, 2 PER DAY
     Route: 048
     Dates: end: 20171001

REACTIONS (4)
  - Macrosomia [Unknown]
  - Gestational diabetes [Unknown]
  - Labour induction [Unknown]
  - Exposure during pregnancy [Recovered/Resolved]

NARRATIVE: CASE EVENT DATE: 20180520
